FAERS Safety Report 8584492-2 (Version None)
Quarter: 2012Q3

REPORT INFORMATION
  Report Type: 
  Country: None (occurrence: None)
  Receive Date: 20120810
  Receipt Date: 20120807
  Transmission Date: 20120928
  Serious: No
  Sender: FDA-Public Use
  Company Number: US-PFIZER INC-2012193553

PATIENT
  Sex: Male

DRUGS (2)
  1. CELEBREX [Suspect]
     Dosage: 100 MG, DAILY OR 2X/DAY
     Route: 048
     Dates: start: 20120101
  2. CELEBREX [Suspect]
     Indication: ARTHRITIS
     Dosage: 100 MG, DAILY OR 2X/DAY
     Route: 048
     Dates: end: 20120101

REACTIONS (1)
  - PURPURA [None]
